FAERS Safety Report 6305517-0 (Version None)
Quarter: 2009Q3

REPORT INFORMATION
  Report Type: 
  Country: None (occurrence: None)
  Receive Date: 20090807
  Receipt Date: 20090722
  Transmission Date: 20100115
  Serious: Yes (Life-Threatening, Hospitalization)
  Sender: FDA-Public Use
  Company Number: 6053210

PATIENT
  Age: 53 Year
  Sex: Female

DRUGS (7)
  1. JODTHYROX (100 MICROGRAM) (LEVOTHYROXINE SODIUM, POTASSIUM IODIDE) [Suspect]
     Indication: DRUG USE FOR UNKNOWN INDICATION
  2. BIOCHEMIE PFLUEGER NR.1, 090204 [Suspect]
     Indication: CONNECTIVE TISSUE DISORDER
     Dosage: 6 DOSAGE FORMS (2 DOSAGE FORMS, 3 IN 1 D)
     Route: 048
  3. BIOCHEMIE PFLUEGER NR.1, 090204 [Suspect]
     Indication: VARICOSE VEIN
     Dosage: 6 DOSAGE FORMS (2 DOSAGE FORMS, 3 IN 1 D)
     Route: 048
  4. 5 [Suspect]
     Indication: CONNECTIVE TISSUE DISORDER
     Dosage: ORAL
     Route: 048
  5. 5 [Suspect]
     Indication: VARICOSE VEIN
     Dosage: ORAL
     Route: 048
  6. BIOCHEMIE PFLUEGER NR.11, 081014 [Suspect]
     Indication: CONNECTIVE TISSUE DISORDER
     Dosage: 3 DOSAGE FORMS (1 DOSAGE FORMS, 3 IN 1 D)
     Route: 048
  7. BIOCHEMIE PFLUEGER NR.11, 081014 [Suspect]
     Indication: VARICOSE VEIN
     Dosage: 3 DOSAGE FORMS (1 DOSAGE FORMS, 3 IN 1 D)
     Route: 048

REACTIONS (2)
  - ANAPHYLACTIC REACTION [None]
  - HYPERSENSITIVITY [None]
